FAERS Safety Report 5008363-3 (Version None)
Quarter: 2006Q2

REPORT INFORMATION
  Report Type: 
  Country: None (occurrence: None)
  Receive Date: 20060523
  Receipt Date: 20041005
  Transmission Date: 20061013
  Serious: Yes (Other)
  Sender: FDA-Public Use
  Company Number: PHBS2004BR13325

PATIENT
  Age: 54 Year
  Sex: Female

DRUGS (5)
  1. LEXOTAN [Concomitant]
     Indication: INSOMNIA
     Dosage: 3 MG/DAY
     Route: 048
  2. BEXTRA [Concomitant]
     Indication: PAIN
     Dosage: 40 MG/DAY
     Route: 048
     Dates: start: 20040919
  3. ZELMAC [Suspect]
     Indication: CONSTIPATION
     Dosage: 12 MG/DAY
     Route: 048
  4. DOSTINEX [Concomitant]
     Indication: BLOOD PROLACTIN ABNORMAL
  5. NIFUROXAZIDE [Concomitant]

REACTIONS (9)
  - ABDOMINAL PAIN [None]
  - ADENOMA BENIGN [None]
  - DIZZINESS [None]
  - DRUG INEFFECTIVE [None]
  - DYSPNOEA [None]
  - ERYTHEMA [None]
  - HEADACHE [None]
  - NODULE [None]
  - VISION BLURRED [None]
